FAERS Safety Report 4404170-0 (Version None)
Quarter: 2004Q3

REPORT INFORMATION
  Report Type: 
  Country: None (occurrence: None)
  Receive Date: 20040719
  Receipt Date: 20040605
  Transmission Date: 20050211
  Serious: Yes (Other)
  Sender: FDA-Public Use
  Company Number: 200412170GDS

PATIENT
  Age: 36 Year
  Sex: Male
  Weight: 82 kg

DRUGS (3)
  1. AVELOX [Suspect]
     Indication: BRONCHITIS
     Dosage: 400 MG, TOTAL DAILY, ORAL
     Route: 048
     Dates: start: 20040625, end: 20040628
  2. LANTUS [Concomitant]
  3. HUMALOG [Concomitant]

REACTIONS (1)
  - CYSTITIS [None]
